FAERS Safety Report 17356830 (Version 2)
Quarter: 2020Q2

REPORT INFORMATION
  Report Type: Report from Study
  Country: CA (occurrence: CA)
  Receive Date: 20200131
  Receipt Date: 20200409
  Transmission Date: 20200713
  Serious: Yes (Other)
  Sender: FDA-Public Use
  Company Number: CA-JNJFOC-20200142786

PATIENT
  Sex: Female

DRUGS (3)
  1. ENTOCORT [Concomitant]
     Active Substance: BUDESONIDE
     Indication: CROHN^S DISEASE
     Route: 065
  2. STELARA [Suspect]
     Active Substance: USTEKINUMAB
     Indication: CROHN^S DISEASE
     Route: 058
     Dates: start: 20180111
  3. STELARA [Suspect]
     Active Substance: USTEKINUMAB

REACTIONS (3)
  - Haemorrhage [Not Recovered/Not Resolved]
  - Crohn^s disease [Unknown]
  - Autonomic nervous system imbalance [Not Recovered/Not Resolved]
